FAERS Safety Report 14384480 (Version 1)
Quarter: 2018Q1

REPORT INFORMATION
  Report Type: Report from Study
  Country: JP (occurrence: JP)
  Receive Date: 20180115
  Receipt Date: 20180115
  Transmission Date: 20180509
  Serious: Yes (Hospitalization)
  Sender: FDA-Public Use
  Company Number: JP-VIFOR (INTERNATIONAL) INC.-VIT-2017-00543

PATIENT
  Age: 79 Year
  Sex: Female
  Weight: 66.8 kg

DRUGS (23)
  1. ADALAT CC [Concomitant]
     Active Substance: NIFEDIPINE
     Route: 048
  2. FERROMIA [Concomitant]
     Active Substance: SODIUM FERROUS CITRATE
     Route: 048
  3. MIRCERA [Concomitant]
     Active Substance: METHOXY POLYETHYLENE GLYCOL-EPOETIN BETA
     Indication: PRODUCT USED FOR UNKNOWN INDICATION
     Dates: end: 20160812
  4. CARDENARIN [Concomitant]
     Route: 048
  5. TAKEPRON OD [Concomitant]
     Active Substance: LANSOPRAZOLE
     Route: 048
  6. KAYEXALATE [Concomitant]
     Active Substance: SODIUM POLYSTYRENE SULFONATE
     Route: 048
  7. CALTAN [Concomitant]
     Active Substance: CALCIUM CARBONATE
     Indication: HYPERPHOSPHATAEMIA
     Route: 048
  8. ANPLAG [Concomitant]
     Active Substance: SARPOGRELATE
     Route: 048
  9. SHAKUYAKUKANZOTO [Concomitant]
     Active Substance: HERBALS
     Route: 048
  10. ARTIST [Concomitant]
     Active Substance: CARVEDILOL
     Route: 048
  11. PURSENNID [Concomitant]
     Active Substance: SENNOSIDES A AND B
     Route: 048
  12. ALFAROL [Concomitant]
     Active Substance: ALFACALCIDOL
     Indication: HYPERPHOSPHATAEMIA
     Route: 048
  13. ANPLAG [Concomitant]
     Active Substance: SARPOGRELATE
     Route: 048
     Dates: start: 20161010
  14. VELPHORO [Suspect]
     Active Substance: FERRIC OXYHYDROXIDE
     Indication: HYPERPHOSPHATAEMIA
     Route: 048
     Dates: end: 20151009
  15. LUPRAC [Concomitant]
     Active Substance: TORSEMIDE
     Route: 048
  16. MIRCERA [Concomitant]
     Active Substance: METHOXY POLYETHYLENE GLYCOL-EPOETIN BETA
     Dates: start: 20160916, end: 20161031
  17. ZACRAS COMBINATION TABLETS HD [Concomitant]
     Route: 048
  18. MOHRUS TAPE [Concomitant]
     Active Substance: KETOPROFEN
     Route: 050
  19. VELPHORO [Suspect]
     Active Substance: FERRIC OXYHYDROXIDE
     Route: 048
     Dates: start: 20151010
  20. FEBURIC [Concomitant]
     Active Substance: FEBUXOSTAT
     Route: 048
  21. LASIX [Concomitant]
     Active Substance: FUROSEMIDE
     Route: 048
  22. LOXONIN [Concomitant]
     Active Substance: LOXOPROFEN SODIUM
     Route: 048
  23. MOHRUS TAPE [Concomitant]
     Active Substance: KETOPROFEN
     Route: 050

REACTIONS (7)
  - Nasopharyngitis [Recovering/Resolving]
  - Constipation [Unknown]
  - Nephrogenic anaemia [Recovered/Resolved]
  - Bradycardia [Recovered/Resolved]
  - C-reactive protein increased [Recovered/Resolved]
  - Condition aggravated [Recovered/Resolved]
  - Sinus node dysfunction [Recovered/Resolved]

NARRATIVE: CASE EVENT DATE: 20160917
